FAERS Safety Report 16409373 (Version 1)
Quarter: 2019Q2

REPORT INFORMATION
  Report Type: Spontaneous
  Country: PL (occurrence: PL)
  Receive Date: 20190610
  Receipt Date: 20190610
  Transmission Date: 20190711
  Serious: Yes (Hospitalization)
  Sender: FDA-Public Use
  Company Number: PL-NOVOPROD-659613

PATIENT
  Age: 30 Year
  Sex: Female
  Weight: 73 kg

DRUGS (6)
  1. NOSPA                              /00359202/ [Concomitant]
     Indication: PREGNANCY
     Dosage: 40 MG, TID
     Route: 048
  2. FEMIBION                           /01597501/ [Concomitant]
     Active Substance: CALCIUM PHOSPHATE, DIBASIC, ANHYDROUS\FERROUS SUCCINATE\MAGNESIUM HYDROXIDE
     Indication: PREGNANCY
     Dosage: 1 TOTAL, QD
     Route: 048
  3. DUPHASTON [Concomitant]
     Active Substance: DYDROGESTERONE
     Indication: PREGNANCY
     Dosage: 10 MG, TID
     Route: 048
  4. ASPARGIN                           /00466901/ [Concomitant]
     Active Substance: ASPARTIC ACID
     Indication: PREGNANCY
     Dosage: 250 MG, TID
     Route: 048
  5. INSULATARD NPH HUMAN [Suspect]
     Active Substance: INSULIN HUMAN
     Indication: GESTATIONAL DIABETES
     Dosage: UNK
     Route: 058
     Dates: start: 20190129
  6. NEOPARIN [Concomitant]
     Indication: PREGNANCY
     Dosage: 0.4 MG, QD
     Route: 058

REACTIONS (2)
  - Vulvovaginal mycotic infection [Unknown]
  - Exposure during pregnancy [Unknown]

NARRATIVE: CASE EVENT DATE: 20190129
